FAERS Safety Report 9661620 (Version 2)
Quarter: 2013Q4

REPORT INFORMATION
  Report Type: Spontaneous
  Country: US (occurrence: US)
  Receive Date: 20131031
  Receipt Date: 20131031
  Transmission Date: 20140711
  Serious: No
  Sender: FDA-Public Use
  Company Number: US-PURDUE-USA-2010-0054366

PATIENT
  Sex: Male

DRUGS (1)
  1. OXYCONTIN (NDA 22-272) [Suspect]
     Indication: DIABETIC NEUROPATHY
     Dosage: 360 MG, DAILY
     Dates: start: 20100910

REACTIONS (2)
  - Burning sensation [Unknown]
  - Inadequate analgesia [Unknown]
